FAERS Safety Report 23307647 (Version 1)
Quarter: 2023Q4

REPORT INFORMATION
  Report Type: Spontaneous
  Country: US (occurrence: None)
  Receive Date: 20231215
  Receipt Date: 20231215
  Transmission Date: 20240110
  Serious: Yes (Other)
  Sender: FDA-Public Use
  Company Number: None

PATIENT
  Age: 67 Year
  Sex: Female
  Weight: 58.05 kg

DRUGS (3)
  1. ROBINUL [Suspect]
     Active Substance: GLYCOPYRROLATE
     Indication: Colonoscopy
     Dates: start: 20231214, end: 20231214
  2. PLAVIX [Concomitant]
     Active Substance: CLOPIDOGREL BISULFATE
  3. Inderel [Concomitant]

REACTIONS (2)
  - Anaphylactic reaction [None]
  - Skin ulcer [None]

NARRATIVE: CASE EVENT DATE: 20231214
